FAERS Safety Report 10367577 (Version 1)
Quarter: 2014Q3

REPORT INFORMATION
  Report Type: Spontaneous
  Country: US (occurrence: None)
  Receive Date: 20140806
  Receipt Date: 20140806
  Transmission Date: 20150326
  Serious: Yes (Disabling)
  Sender: FDA-Public Use
  Company Number: None

PATIENT
  Age: 26 Year
  Sex: Male
  Weight: 75.3 kg

DRUGS (1)
  1. AMPHETAMINE SALTS [Suspect]
     Active Substance: AMPHETAMINE ASPARTATE\AMPHETAMINE SULFATE\DEXTROAMPHETAMINE SACCHARATE\DEXTROAMPHETAMINE SULFATE
     Indication: ATTENTION DEFICIT/HYPERACTIVITY DISORDER
     Dosage: 1 PILL THREE TIEMS DAILY RECTAL
     Dates: start: 20140716, end: 20140804

REACTIONS (7)
  - Insomnia [None]
  - Product quality issue [None]
  - Weight decreased [None]
  - Drug ineffective [None]
  - Migraine [None]
  - Cold sweat [None]
  - Product substitution issue [None]

NARRATIVE: CASE EVENT DATE: 20140804
